FAERS Safety Report 8621418-7 (Version None)
Quarter: 2012Q3

REPORT INFORMATION
  Report Type: 
  Country: None (occurrence: None)
  Receive Date: 20120824
  Receipt Date: 20120821
  Transmission Date: 20120928
  Serious: No
  Sender: FDA-Public Use
  Company Number: US-PFIZER INC-2012205859

PATIENT
  Age: 55 Year
  Sex: Female
  Weight: 81.6 kg

DRUGS (3)
  1. NEURONTIN [Suspect]
     Indication: NEURALGIA
     Dosage: UNK
     Route: 048
  2. AMBIEN [Concomitant]
     Dosage: UNK
  3. LYRICA [Suspect]
     Indication: NEURALGIA
     Dosage: 150 MG, 2X/DAY
     Route: 048

REACTIONS (6)
  - DRUG INEFFECTIVE [None]
  - BALANCE DISORDER [None]
  - DIZZINESS [None]
  - PLATELET COUNT INCREASED [None]
  - WHITE BLOOD CELL COUNT INCREASED [None]
  - THERAPEUTIC RESPONSE UNEXPECTED [None]
